FAERS Safety Report 4713468-8 (Version None)
Quarter: 2005Q3

REPORT INFORMATION
  Report Type: 
  Country: None (occurrence: None)
  Receive Date: 20050701
  Receipt Date: 20041008
  Transmission Date: 20060218
  Serious: Yes (Hospitalization)
  Sender: FDA-Public Use
  Company Number: US-2004-027942

PATIENT
  Age: 42 Year
  Sex: Female

DRUGS (7)
  1. YASMIN [Suspect]
     Indication: UTERINE HAEMORRHAGE
     Dosage: 1 TAB(S), 1X/DAY, ORAL
     Route: 048
     Dates: start: 20030501, end: 20040601
  2. XANAX [Concomitant]
  3. DIOVAN ^CIBA-GEIGY^ (VALSARTAN) [Concomitant]
  4. ASPIRIN [Concomitant]
  5. FISH OIL [Concomitant]
  6. VITAMIN E [Concomitant]
  7. CALCIUM GLUCONATE [Concomitant]

REACTIONS (1)
  - PULMONARY EMBOLISM [None]
